FAERS Safety Report 23736998 (Version 1)
Quarter: 2024Q2

REPORT INFORMATION
  Report Type: Spontaneous
  Country: US (occurrence: US)
  Receive Date: 20240412
  Receipt Date: 20240412
  Transmission Date: 20240715
  Serious: Yes (Hospitalization, Other)
  Sender: FDA-Public Use
  Company Number: US-SUN PHARMACEUTICAL INDUSTRIES LTD-2024R1-440741

PATIENT
  Age: 19 Year

DRUGS (1)
  1. BUPROPION [Suspect]
     Active Substance: BUPROPION
     Indication: Major depression
     Route: 065

REACTIONS (4)
  - Intentional overdose [Unknown]
  - Rapid eye movement sleep behaviour disorder [Unknown]
  - Aphonia [Unknown]
  - Tremor [Unknown]
